FAERS Safety Report 23748451 (Version 2)
Quarter: 2024Q2

REPORT INFORMATION
  Report Type: Spontaneous
  Country: IN (occurrence: IN)
  Receive Date: 20240416
  Receipt Date: 20240418
  Transmission Date: 20240716
  Serious: Yes (Death, Other)
  Sender: FDA-Public Use
  Company Number: IN-009507513-2404IND007238

PATIENT
  Sex: Female

DRUGS (1)
  1. KEYTRUDA [Suspect]
     Active Substance: PEMBROLIZUMAB
     Indication: Lip and/or oral cavity cancer
     Dosage: UNK
     Dates: start: 2022, end: 2022

REACTIONS (5)
  - Death [Fatal]
  - Malignant neoplasm progression [Unknown]
  - Illness [Unknown]
  - Therapeutic response decreased [Unknown]
  - Counterfeit product administered [Unknown]

NARRATIVE: CASE EVENT DATE: 20220101
